FAERS Safety Report 20937482 (Version 1)
Quarter: 2022Q2

REPORT INFORMATION
  Report Type: Spontaneous
  Country: US (occurrence: None)
  Receive Date: 20220608
  Receipt Date: 20220608
  Transmission Date: 20220720
  Serious: Yes (Hospitalization)
  Sender: FDA-Public Use
  Company Number: None

PATIENT
  Age: 66 Year
  Sex: Male

DRUGS (1)
  1. ASPIRIN [Suspect]
     Active Substance: ASPIRIN
     Indication: Cerebrovascular accident prophylaxis
     Dosage: 81 MG EVERY DAY PO
     Route: 048
     Dates: start: 20220210, end: 20220426

REACTIONS (4)
  - Gastrointestinal haemorrhage [None]
  - Haemoglobin decreased [None]
  - Diverticulum [None]
  - Gastric polyps [None]

NARRATIVE: CASE EVENT DATE: 20220426
